FAERS Safety Report 8390710-6 (Version None)
Quarter: 2012Q2

REPORT INFORMATION
  Report Type: 
  Country: None (occurrence: None)
  Receive Date: 20120529
  Receipt Date: 20120523
  Transmission Date: 20120825
  Serious: Yes (Other)
  Sender: FDA-Public Use
  Company Number: PHHY2012CH044946

PATIENT
  Age: 79 Year
  Sex: Male
  Weight: 69 kg

DRUGS (6)
  1. ASPIRIN [Concomitant]
     Indication: MYOCARDIAL ISCHAEMIA
     Dosage: 100 MG DAILY
     Route: 048
  2. METOPROLOL SUCCINATE [Suspect]
     Indication: ESSENTIAL HYPERTENSION
     Dosage: 75 MG, DAILY
     Route: 048
     Dates: start: 20120116
  3. GLIMEPIRIDE [Concomitant]
     Indication: TYPE 2 DIABETES MELLITUS
  4. NEXIUM [Suspect]
     Dosage: 20 MG, DAILY
     Route: 048
  5. PLAVIX [Suspect]
     Dosage: 75 MG, DAILY
     Route: 048
     Dates: start: 20120116, end: 20120508
  6. LISINOPRIL [Concomitant]
     Dosage: 20 MG, DAILY

REACTIONS (2)
  - ABDOMINAL PAIN [None]
  - DIARRHOEA [None]
